FAERS Safety Report 7468979-1 (Version None)
Quarter: 2011Q2

REPORT INFORMATION
  Report Type: 
  Country: None (occurrence: None)
  Receive Date: 20110429
  Receipt Date: 20110419
  Transmission Date: 20111010
  Serious: Yes (Hospitalization, Other)
  Sender: FDA-Public Use
  Company Number: WAES 1001USA02587

PATIENT
  Age: 75 Year
  Sex: Male
  Weight: 83.9154 kg

DRUGS (8)
  1. EUTHYROX [Concomitant]
  2. WARFARIN SODIUM [Concomitant]
  3. LISINOPRIL [Concomitant]
  4. VYTORIN [Suspect]
     Indication: ACUTE CORONARY SYNDROME
     Dosage: 10-40 MG/DAILY/PO
     Route: 048
     Dates: start: 20080128, end: 20091114
  5. SERETIDE [Concomitant]
  6. ASPIRIN [Concomitant]
  7. PLACEBO [Suspect]
     Indication: ACUTE CORONARY SYNDROME
     Dosage: PO
     Route: 048
     Dates: start: 20080128, end: 20091114
  8. TORSEMIDE [Concomitant]

REACTIONS (2)
  - LUNG NEOPLASM MALIGNANT [None]
  - ASPERGILLOMA [None]
